FAERS Safety Report 9900052 (Version 1)
Quarter: 2014Q1

REPORT INFORMATION
  Report Type: Spontaneous
  Country: US (occurrence: US)
  Receive Date: 20140214
  Receipt Date: 20140214
  Transmission Date: 20141002
  Serious: No
  Sender: FDA-Public Use
  Company Number: US-VIVUS-2014V1000041

PATIENT
  Age: 46 Year
  Sex: Female

DRUGS (4)
  1. QSYMIA 7.5MG/46MG [Suspect]
     Indication: WEIGHT DECREASED
     Route: 048
     Dates: start: 20140113, end: 20140114
  2. QSYMIA 7.5MG/46MG [Suspect]
     Route: 048
     Dates: start: 201306
  3. QSYMIA 11.25MG/69MG [Suspect]
     Indication: WEIGHT DECREASED
     Route: 048
     Dates: start: 201308, end: 201311
  4. QSYMIA 3.75MG/23MG [Suspect]
     Indication: WEIGHT DECREASED
     Route: 048
     Dates: start: 201211, end: 201305

REACTIONS (3)
  - Chills [Recovered/Resolved]
  - Musculoskeletal stiffness [Recovering/Resolving]
  - Oropharyngeal pain [Unknown]
